FAERS Safety Report 8770508 (Version 1)
Quarter: 2012Q4

REPORT INFORMATION
  Report Type: 
  Country: US (occurrence: US)
  Receive Date: 20120906
  Receipt Date: 20120906
  Transmission Date: 20130627
  Serious: No
  Sender: FDA-Public Use
  Company Number: US-BAYER-2012-092048

PATIENT
  Age: 65 Year
  Sex: Male
  Weight: 108.84 kg

DRUGS (4)
  1. BAYER ADVANCED ASPIRIN EXTRA STRENGTH [Suspect]
     Indication: HEADACHE
     Dosage: 2 DF, PRN
     Route: 048
     Dates: start: 201205, end: 201207
  2. ALEVE CAPLET/TABLET,MIDOL EXTENDED RELIEF CAPLET [Suspect]
     Indication: HEADACHE
     Dosage: 1 DF, PRN
     Route: 048
     Dates: start: 201205
  3. ONE-A-DAY ESSENTIAL [Concomitant]
  4. SIMVASTATIN [Concomitant]

REACTIONS (1)
  - Headache [None]
